FAERS Safety Report 10247001 (Version 1)
Quarter: 2014Q2

REPORT INFORMATION
  Report Type: Spontaneous
  Country: US (occurrence: US)
  Receive Date: 20140619
  Receipt Date: 20140619
  Transmission Date: 20141212
  Serious: Yes (Life-Threatening, Hospitalization, Other)
  Sender: FDA-Public Use
  Company Number: US-ASTRAZENECA-2014SE44731

PATIENT
  Age: 70 Year
  Sex: Female
  Weight: 104.3 kg

DRUGS (20)
  1. NEXIUM [Suspect]
     Indication: GASTROOESOPHAGEAL REFLUX DISEASE
     Route: 048
     Dates: start: 2008
  2. NEXIUM [Suspect]
     Indication: BARRETT^S OESOPHAGUS
     Route: 048
     Dates: start: 2008
  3. PRILOSEC [Suspect]
     Indication: GASTROOESOPHAGEAL REFLUX DISEASE
     Route: 048
     Dates: start: 2008, end: 2008
  4. PRILOSEC [Suspect]
     Indication: BARRETT^S OESOPHAGUS
     Route: 048
     Dates: start: 2008, end: 2008
  5. PERCOCET [Suspect]
     Route: 048
     Dates: start: 2010
  6. ZANTAC [Concomitant]
     Indication: DYSPEPSIA
     Route: 048
     Dates: start: 2008
  7. UNKNOWN WEIGHT LOSS PRODUCT [Concomitant]
  8. ADVAIR [Concomitant]
     Indication: CHRONIC OBSTRUCTIVE PULMONARY DISEASE
     Dosage: 250/50 BID
     Route: 055
     Dates: start: 2010
  9. COMIVENT [Concomitant]
     Indication: CHRONIC OBSTRUCTIVE PULMONARY DISEASE
     Dosage: PRN
     Route: 055
     Dates: start: 2010
  10. ASPIRIN [Concomitant]
     Indication: CARDIAC DISORDER
     Route: 048
     Dates: start: 2010
  11. SIMVASTATIN [Concomitant]
     Indication: BLOOD CHOLESTEROL ABNORMAL
     Route: 048
     Dates: start: 2010
  12. CITALOPRAM [Concomitant]
     Indication: DIABETES MELLITUS
     Route: 048
     Dates: start: 2012
  13. METFORMIN [Concomitant]
     Indication: DIABETES MELLITUS
     Route: 048
     Dates: start: 2012
  14. NAPEGLRIDE [Concomitant]
     Indication: DIABETES MELLITUS
     Route: 048
     Dates: start: 2012
  15. CALCIUM WITH VITAMIN A [Concomitant]
     Indication: BLOOD DISORDER
     Route: 048
     Dates: start: 2012
  16. CALCIUM WITH VITAMIN A [Concomitant]
     Indication: CALCIUM DEFICIENCY
     Route: 048
     Dates: start: 2012
  17. VITAMIN B12 [Concomitant]
     Indication: VITAMIN B12 DEFICIENCY
     Route: 048
     Dates: start: 2012
  18. VITAMIN D3 [Concomitant]
     Indication: VITAMIN D DEFICIENCY
     Route: 048
     Dates: start: 2012
  19. IRON [Concomitant]
     Indication: IRON DEFICIENCY
     Route: 048
     Dates: start: 2012
  20. IRON [Concomitant]
     Indication: ANAEMIA
     Route: 048
     Dates: start: 2012

REACTIONS (16)
  - Coma [Unknown]
  - General physical health deterioration [Unknown]
  - Renal failure [Unknown]
  - Liver disorder [Unknown]
  - Myocardial infarction [Unknown]
  - Arthropathy [Unknown]
  - Blood pressure immeasurable [Unknown]
  - Investigation abnormal [Unknown]
  - Calcium deficiency [Unknown]
  - Sleep apnoea syndrome [Unknown]
  - Weight increased [Unknown]
  - Somnolence [Unknown]
  - Chronic obstructive pulmonary disease [Unknown]
  - Off label use [Unknown]
  - Off label use [Unknown]
  - Drug ineffective for unapproved indication [Unknown]
